FAERS Safety Report 4597743-6 (Version None)
Quarter: 2005Q1

REPORT INFORMATION
  Report Type: 
  Country: None (occurrence: None)
  Receive Date: 20050303
  Receipt Date: 20050228
  Transmission Date: 20050727
  Serious: Yes (Hospitalization)
  Sender: FDA-Public Use
  Company Number: US-MERCK-0502USA03650

PATIENT
  Age: 28 Year
  Sex: Male
  Weight: 131 kg

DRUGS (8)
  1. NEXIUM [Concomitant]
     Indication: GASTROOESOPHAGEAL REFLUX DISEASE
     Route: 048
  2. NEXIUM [Concomitant]
     Route: 065
     Dates: start: 20040907
  3. GLUCOPHAGE [Concomitant]
     Route: 048
  4. ZETIA [Concomitant]
     Route: 048
  5. ZOCOR [Concomitant]
     Route: 048
  6. PRINIVIL [Suspect]
     Indication: HYPERTENSION
     Route: 048
     Dates: start: 20030101
  7. PRINIVIL [Suspect]
     Route: 048
  8. PRINIVIL [Suspect]
     Route: 048
     Dates: start: 20040907, end: 20040101

REACTIONS (20)
  - ABDOMINAL PAIN [None]
  - CHEST PAIN [None]
  - CONSTIPATION [None]
  - DIABETES MELLITUS [None]
  - DIZZINESS POSTURAL [None]
  - DRUG HYPERSENSITIVITY [None]
  - DYSPNOEA [None]
  - EPIGASTRIC DISCOMFORT [None]
  - ERUCTATION [None]
  - ESSENTIAL HYPERTENSION [None]
  - FATIGUE [None]
  - FLATULENCE [None]
  - GASTROINTESTINAL HAEMORRHAGE [None]
  - HAEMATOCHEZIA [None]
  - HYPERLIPIDAEMIA [None]
  - LOWER GASTROINTESTINAL HAEMORRHAGE [None]
  - PANCREATITIS ACUTE [None]
  - SLEEP APNOEA SYNDROME [None]
  - SNORING [None]
  - VISION BLURRED [None]
